FAERS Safety Report 23742859 (Version 1)
Quarter: 2024Q2

REPORT INFORMATION
  Report Type: Spontaneous
  Country: US (occurrence: US)
  Receive Date: 20240415
  Receipt Date: 20240415
  Transmission Date: 20240715
  Serious: Yes (Other)
  Sender: FDA-Public Use
  Company Number: US-FreseniusKabi-FK202406039

PATIENT

DRUGS (4)
  1. VINBLASTINE [Suspect]
     Active Substance: VINBLASTINE
     Indication: Product used for unknown indication
     Dosage: FORM OF ADMIN: INFUSION
     Dates: start: 202306, end: 202311
  2. DOXORUBICIN [Suspect]
     Active Substance: DOXORUBICIN
     Indication: Product used for unknown indication
     Dosage: FORM OF ADMIN: INFUSION
     Dates: start: 202306, end: 202311
  3. DACARBAZINE [Suspect]
     Active Substance: DACARBAZINE
     Indication: Product used for unknown indication
     Dosage: FORM OF ADMIN: INFUSION
     Dates: start: 202306, end: 202311
  4. ADCETRIS [Suspect]
     Active Substance: BRENTUXIMAB VEDOTIN
     Indication: Product used for unknown indication
     Dosage: FORM OF ADMIN: INFUSION
     Dates: start: 202306, end: 202311

REACTIONS (1)
  - Neuropathy peripheral [Recovering/Resolving]
